FAERS Safety Report 7322766-3 (Version None)
Quarter: 2011Q1

REPORT INFORMATION
  Report Type: 
  Country: None (occurrence: None)
  Receive Date: 20110301
  Receipt Date: 20110216
  Transmission Date: 20110831
  Serious: Yes (Hospitalization)
  Sender: FDA-Public Use
  Company Number: US-ASTRAZENECA-2011SE09165

PATIENT
  Age: 73 Year
  Sex: Male

DRUGS (14)
  1. FLOMAX [Concomitant]
  2. ASA [Concomitant]
  3. LISINOPRIL [Concomitant]
  4. TAXOTERE [Suspect]
     Indication: PROSTATE CANCER
     Route: 042
  5. AMIODARONE [Concomitant]
  6. POTASSIUM CHLORIDE [Concomitant]
  7. LEXAPRO [Concomitant]
  8. LUPRON [Suspect]
     Indication: PROSTATE CANCER
     Route: 030
     Dates: start: 20101229, end: 20110203
  9. LASIX [Concomitant]
  10. ALBUTEROL SULFATE [Concomitant]
  11. RADIOTHERAPY [Suspect]
     Indication: PROSTATE CANCER
  12. COREG [Concomitant]
  13. CASODEX [Suspect]
     Indication: PROSTATE CANCER
     Route: 048
     Dates: start: 20101227, end: 20110212
  14. ADVAIR DISKUS 100/50 [Concomitant]

REACTIONS (4)
  - DEHYDRATION [None]
  - LOBAR PNEUMONIA [None]
  - HYPOTENSION [None]
  - CHRONIC OBSTRUCTIVE PULMONARY DISEASE [None]
